FAERS Safety Report 5605634-4 (Version None)
Quarter: 2008Q1

REPORT INFORMATION
  Report Type: 
  Country: None (occurrence: None)
  Receive Date: 20080123
  Receipt Date: 20080123
  Transmission Date: 20080703
  Serious: Yes (Life-Threatening, Hospitalization)
  Sender: FDA-Public Use
  Company Number: None

PATIENT
  Age: 10 Year
  Sex: Female
  Weight: 55.7924 kg

DRUGS (2)
  1. MUCINEX DM [Suspect]
     Indication: COUGH
     Dates: start: 20071203, end: 20071204
  2. MUCINEX DM [Suspect]
     Indication: SINUS DISORDER
     Dates: start: 20071203, end: 20071204

REACTIONS (6)
  - DIZZINESS [None]
  - FALL [None]
  - HEART RATE DECREASED [None]
  - HYPOTENSION [None]
  - SYNCOPE [None]
  - UNRESPONSIVE TO STIMULI [None]
